FAERS Safety Report 6912394-3 (Version None)
Quarter: 2010Q3

REPORT INFORMATION
  Report Type: 
  Country: None (occurrence: None)
  Receive Date: 20100806
  Receipt Date: 20080422
  Transmission Date: 20110219
  Serious: Yes (Other)
  Sender: FDA-Public Use
  Company Number: US-PFIZER INC-2008036418

PATIENT
  Sex: Male
  Weight: 73.94 kg

DRUGS (3)
  1. DILANTIN [Suspect]
     Indication: EPILEPSY
  2. PHENYTOIN [Suspect]
  3. DIAMOX SRC [Concomitant]

REACTIONS (9)
  - ANTICONVULSANT DRUG LEVEL DECREASED [None]
  - CONTUSION [None]
  - CONVULSION [None]
  - FATIGUE [None]
  - INJURY [None]
  - IRRITABILITY [None]
  - MALABSORPTION [None]
  - NERVOUSNESS [None]
  - SOMNOLENCE [None]
